FAERS Safety Report 6314892-2 (Version None)
Quarter: 2009Q3

REPORT INFORMATION
  Report Type: 
  Country: None (occurrence: None)
  Receive Date: 20090819
  Receipt Date: 20090809
  Transmission Date: 20100115
  Serious: Yes (Hospitalization, Other)
  Sender: FDA-Public Use
  Company Number: US-ABBOTT-09P-163-0590088-00

PATIENT
  Sex: Female
  Weight: 71.278 kg

DRUGS (2)
  1. HUMIRA [Suspect]
     Indication: RHEUMATOID ARTHRITIS
     Dates: start: 20071001
  2. SEVERAL UNNAMES MEDS [Concomitant]
     Indication: DRUG USE FOR UNKNOWN INDICATION

REACTIONS (4)
  - AMNESIA [None]
  - COMA [None]
  - MYOCARDIAL INFARCTION [None]
  - VOCAL CORD DISORDER [None]
